FAERS Safety Report 18204144 (Version 1)
Quarter: 2020Q3

REPORT INFORMATION
  Report Type: Spontaneous
  Country: FR (occurrence: FR)
  Receive Date: 20200827
  Receipt Date: 20200827
  Transmission Date: 20201103
  Serious: Yes (Other)
  Sender: FDA-Public Use
  Company Number: FR-009507513-2008FRA012660

PATIENT
  Age: 35 Year
  Sex: Female

DRUGS (1)
  1. SINGULAIR [Suspect]
     Active Substance: MONTELUKAST SODIUM
     Indication: ASPIRIN-EXACERBATED RESPIRATORY DISEASE
     Dosage: 10 MILLIGRAM, QD
     Route: 048
     Dates: start: 202003, end: 20200703

REACTIONS (4)
  - Suicidal ideation [Recovered/Resolved]
  - Behaviour disorder [Recovered/Resolved]
  - Abnormal dreams [Recovered/Resolved]
  - Anxiety [Recovered/Resolved]

NARRATIVE: CASE EVENT DATE: 202004
